FAERS Safety Report 8607647 (Version 2)
Quarter: 2012Q4

REPORT INFORMATION
  Report Type: Report from Study
  Country: US (occurrence: US)
  Receive Date: 20120611
  Receipt Date: 20120830
  Transmission Date: 20130627
  Serious: Yes (Death, Hospitalization)
  Sender: FDA-Public Use
  Company Number: US-ASTELLAS-2012US005111

PATIENT
  Age: 72 Year
  Sex: Male

DRUGS (1)
  1. ERLOTINIB TABLET [Suspect]
     Indication: LUNG CARCINOMA CELL TYPE UNSPECIFIED STAGE 0
     Dosage: 150 mg, UID/QD
     Route: 048
     Dates: start: 20120502

REACTIONS (4)
  - Acute respiratory failure [Fatal]
  - Muscular weakness [Unknown]
  - Nausea [Unknown]
  - Vomiting [Unknown]
